FAERS Safety Report 20120747 (Version 1)
Quarter: 2021Q4

REPORT INFORMATION
  Report Type: Spontaneous
  Country: US (occurrence: None)
  Receive Date: 20211126
  Receipt Date: 20211126
  Transmission Date: 20220303
  Serious: No
  Sender: FDA-Public Use
  Company Number: None

PATIENT
  Age: 13 Year
  Sex: Female
  Weight: 47.25 kg

DRUGS (1)
  1. PROACTIV [Suspect]
     Active Substance: BENZOYL PEROXIDE
     Indication: Acne
     Dosage: FREQUENCY : TWICE A DAY;?
     Route: 061
     Dates: start: 20211125, end: 20211126

REACTIONS (2)
  - Swelling face [None]
  - Eye swelling [None]

NARRATIVE: CASE EVENT DATE: 20211126
